FAERS Safety Report 20085210 (Version 1)
Quarter: 2021Q4

REPORT INFORMATION
  Report Type: Spontaneous
  Country: DE (occurrence: DE)
  Receive Date: 20211118
  Receipt Date: 20211118
  Transmission Date: 20220303
  Serious: Yes (Other)
  Sender: FDA-Public Use
  Company Number: DE-TEVA-2021-DE-1977526

PATIENT
  Age: 50 Year
  Sex: Female

DRUGS (2)
  1. ISOTRETINOIN [Suspect]
     Active Substance: ISOTRETINOIN
     Indication: Hidradenitis
     Route: 065
  2. ADALIMUMAB [Suspect]
     Active Substance: ADALIMUMAB
     Indication: Hidradenitis
     Dosage: COMBINING WEEKLY ADMINISTRATION OF 40 MG ADALIMUMAB S.C. VS. PLACEBO FOR 3 MONTHS, FOLLOWED BY CO...
     Route: 058

REACTIONS (4)
  - Pyoderma gangrenosum [Recovering/Resolving]
  - Paradoxical drug reaction [Recovering/Resolving]
  - Pustular psoriasis [Recovering/Resolving]
  - Drug ineffective [Unknown]
